FAERS Safety Report 5441751-X (Version None)
Quarter: 2007Q3

REPORT INFORMATION
  Report Type: 
  Country: None (occurrence: None)
  Receive Date: 20070829
  Receipt Date: 20070829
  Transmission Date: 20080115
  Serious: No
  Sender: FDA-Public Use
  Company Number: None

PATIENT
  Age: 62 Year
  Sex: Female
  Weight: 67.1324 kg

DRUGS (1)
  1. NORETHINDRONE 5 MG BARR [Suspect]
     Indication: HORMONE REPLACEMENT THERAPY
     Dosage: 2.5 MG DAILY PO
     Route: 048
     Dates: start: 20070601, end: 20070607

REACTIONS (5)
  - CHEST PAIN [None]
  - HEADACHE [None]
  - IRRITABILITY [None]
  - PHARMACEUTICAL PRODUCT COMPLAINT [None]
  - THERAPEUTIC PRODUCT CONTAMINATION [None]
